FAERS Safety Report 5851870-1 (Version None)
Quarter: 2008Q3

REPORT INFORMATION
  Report Type: 
  Country: None (occurrence: None)
  Receive Date: 20080819
  Receipt Date: 20080806
  Transmission Date: 20090109
  Serious: Yes (Other)
  Sender: FDA-Public Use
  Company Number: 2008-00689

PATIENT
  Age: 60 Year
  Sex: Male

DRUGS (12)
  1. VELCADE [Suspect]
     Indication: MULTIPLE MYELOMA
     Dosage: 2.3 MG,   INTRAVENOUS
     Route: 042
     Dates: start: 20080101
  2. KEPPRA [Concomitant]
  3. CLONAZEPAM [Concomitant]
  4. PHENOBARBITAL TAB [Concomitant]
  5. ANTIEPILEPTICS [Concomitant]
  6. ZOFRAN [Concomitant]
  7. DEXAMETHASONE TAB [Concomitant]
  8. MOVICOL (SODIUM BICARBONATE, SODIUM CHLORIDE, MACROGOL, POTASSIUM CHLO [Concomitant]
  9. NICARDIPINE HYDROCHLORIDE [Concomitant]
  10. HYDROCHLOROTHIAZIDE [Concomitant]
  11. IRBESARTAN [Concomitant]
  12. MACROGOL (MACROGOL) [Concomitant]

REACTIONS (5)
  - DISEASE RECURRENCE [None]
  - DRUG INTERACTION [None]
  - EPILEPSY [None]
  - HYPONATRAEMIA [None]
  - PETIT MAL EPILEPSY [None]
